FAERS Safety Report 4703677-6 (Version None)
Quarter: 2005Q2

REPORT INFORMATION
  Report Type: 
  Country: None (occurrence: None)
  Receive Date: 20050628
  Receipt Date: 20050616
  Transmission Date: 20051028
  Serious: Yes (Other)
  Sender: FDA-Public Use
  Company Number: 200510547BWH

PATIENT
  Age: 75 Year
  Sex: Male
  Weight: 70.7611 kg

DRUGS (3)
  1. LEVITRA [Suspect]
     Indication: ERECTILE DYSFUNCTION
     Dosage: 10 + 5 MG, PRN, HS, ORAL
     Route: 048
     Dates: start: 20050320
  2. VIAGRA [Suspect]
     Indication: ERECTILE DYSFUNCTION
  3. ASPIRIN [Concomitant]

REACTIONS (20)
  - AMAUROSIS FUGAX [None]
  - AORTIC THROMBOSIS [None]
  - APATHY [None]
  - ARTERIOSCLEROTIC RETINOPATHY [None]
  - ATHEROSCLEROSIS [None]
  - BLOOD PRESSURE DECREASED [None]
  - CAROTID ARTERY THROMBOSIS [None]
  - CATARACT [None]
  - DIZZINESS [None]
  - DRUG EFFECT DECREASED [None]
  - EYE PAIN [None]
  - GLAUCOMA [None]
  - HEART RATE DECREASED [None]
  - HYPERLIPIDAEMIA [None]
  - MACULAR DEGENERATION [None]
  - MALAISE [None]
  - MEMORY IMPAIRMENT [None]
  - PHARMACEUTICAL PRODUCT COMPLAINT [None]
  - TREATMENT NONCOMPLIANCE [None]
  - VOMITING [None]
